FAERS Safety Report 24141351 (Version 1)
Quarter: 2024Q3

REPORT INFORMATION
  Report Type: Spontaneous
  Country: CN (occurrence: CN)
  Receive Date: 20240726
  Receipt Date: 20240726
  Transmission Date: 20241017
  Serious: Yes (Hospitalization)
  Sender: BAYER
  Company Number: CN-BAYER-2024A108533

PATIENT
  Age: 56 Year
  Sex: Female
  Weight: 60 kg

DRUGS (2)
  1. GLUCOBAY [Suspect]
     Active Substance: ACARBOSE
     Indication: Type 2 diabetes mellitus
     Dosage: 1 DF, TID
     Route: 048
     Dates: start: 2023, end: 20240707
  2. EMPAGLIFLOZIN\METFORMIN HYDROCHLORIDE [Suspect]
     Active Substance: EMPAGLIFLOZIN\METFORMIN HYDROCHLORIDE
     Indication: Type 2 diabetes mellitus
     Dosage: 2 DF, BID
     Route: 048
     Dates: start: 2023, end: 20240707

REACTIONS (5)
  - Pyrexia [None]
  - Chest discomfort [None]
  - Productive cough [None]
  - Dysphagia [None]
  - Nausea [Recovering/Resolving]

NARRATIVE: CASE EVENT DATE: 20240601
